FAERS Safety Report 9168267 (Version 1)
Quarter: 2013Q1

REPORT INFORMATION
  Report Type: Spontaneous
  Country: CZ (occurrence: None)
  Receive Date: 20130308
  Receipt Date: 20130308
  Transmission Date: 20140127
  Serious: Yes (Other)
  Sender: FDA-Public Use
  Company Number: 2013P1002849

PATIENT
  Age: 64 Year
  Sex: Male

DRUGS (4)
  1. IRINOTECAN [Suspect]
     Indication: COLORECTAL CANCER
  2. IRINOTECAN [Suspect]
     Indication: METASTASES TO LIVER
  3. LEUCOVORIN [Concomitant]
  4. 5-FLUOROURACIL [Concomitant]

REACTIONS (3)
  - Hepatic steatosis [None]
  - Hepatic necrosis [None]
  - Hepatic fibrosis [None]
